FAERS Safety Report 8917984 (Version 2)
Quarter: 2012Q4

REPORT INFORMATION
  Report Type: 
  Country: US (occurrence: US)
  Receive Date: 20121120
  Receipt Date: 20121130
  Transmission Date: 20130627
  Serious: Yes (Hospitalization, Other)
  Sender: FDA-Public Use
  Company Number: PHHY2012US105074

PATIENT
  Age: 68 Year
  Sex: Female

DRUGS (6)
  1. CARBOPLATIN [Suspect]
     Indication: BREAST CANCER METASTATIC
  2. DOCETAXEL [Suspect]
     Indication: BREAST CANCER METASTATIC
  3. TRASTUZUMAB [Suspect]
     Indication: BREAST CANCER METASTATIC
  4. ONDANSETRAN [Concomitant]
     Indication: NAUSEA
  5. PROCHLORPERAZINE [Concomitant]
     Indication: NAUSEA
  6. LORAZEPAM [Concomitant]

REACTIONS (3)
  - Dehydration [Recovering/Resolving]
  - Nausea [Recovering/Resolving]
  - Vomiting [Recovered/Resolved]
